FAERS Safety Report 18242458 (Version 2)
Quarter: 2020Q3

REPORT INFORMATION
  Report Type: Other
  Country: DE (occurrence: DE)
  Receive Date: 20200908
  Receipt Date: 20200928
  Transmission Date: 20201103
  Serious: Yes (Other)
  Sender: FDA-Public Use
  Company Number: DE-ROCHE-2673061

PATIENT
  Age: 71 Year
  Sex: Male

DRUGS (1)
  1. VISMODEGIB. [Suspect]
     Active Substance: VISMODEGIB
     Indication: BASAL CELL CARCINOMA
     Route: 048
     Dates: start: 20170925, end: 20180515

REACTIONS (1)
  - Muscle spasms [Recovered/Resolved]

NARRATIVE: CASE EVENT DATE: 20171011
